FAERS Safety Report 21487526 (Version 1)
Quarter: 2022Q4

REPORT INFORMATION
  Report Type: Report from Study
  Country: CN (occurrence: CN)
  Receive Date: 20221020
  Receipt Date: 20221020
  Transmission Date: 20230113
  Serious: Yes (Other)
  Sender: FDA-Public Use
  Company Number: CN-SA-2022SA426569

PATIENT
  Sex: Male

DRUGS (4)
  1. DOCETAXEL [Suspect]
     Active Substance: DOCETAXEL
     Indication: Prostate cancer
     Dosage: 75 MG/M2,INTRAVENOUS INFUSION
     Route: 042
  2. CISPLATIN [Concomitant]
     Active Substance: CISPLATIN
     Indication: Prostate cancer
     Dosage: 75 MG/M2,INTRAVENOUSLY
     Route: 042
  3. LEUPROLIDE ACETATE [Concomitant]
     Active Substance: LEUPROLIDE ACETATE
     Indication: Androgen therapy
     Dosage: UNK UNK, Q3W,CONTINUAL SUBCUTANEOUS INJECTION
     Route: 058
  4. GOSERELIN [Concomitant]
     Active Substance: GOSERELIN
     Indication: Androgen therapy
     Dosage: UNK UNK, Q3W,CONTINUAL SUBCUTANEOUS INJECTION
     Route: 058

REACTIONS (2)
  - Hepatic failure [Unknown]
  - Hepatitis A [Unknown]
